FAERS Safety Report 9846110 (Version 1)
Quarter: 2013Q4

REPORT INFORMATION
  Report Type: Spontaneous
  Country: US (occurrence: None)
  Receive Date: 20131223
  Receipt Date: 20131223
  Transmission Date: 20140711
  Serious: Yes (Other)
  Sender: FDA-Public Use
  Company Number: DSA_61783_2013

PATIENT
  Age: 57 Year
  Sex: Male

DRUGS (2)
  1. XENAZINE [Suspect]
     Route: 048
     Dates: start: 20121227
  2. ANTI-DEPRESSANT NOS (100 MILLIGRAM) [Concomitant]

REACTIONS (2)
  - Depression [None]
  - Insomnia [None]
